FAERS Safety Report 6384211-4 (Version None)
Quarter: 2009Q4

REPORT INFORMATION
  Report Type: 
  Country: None (occurrence: None)
  Receive Date: 20091001
  Receipt Date: 20090925
  Transmission Date: 20100525
  Serious: Yes (Hospitalization, Other)
  Sender: FDA-Public Use
  Company Number: B0583696A

PATIENT
  Sex: Male

DRUGS (4)
  1. PAXIL [Suspect]
     Indication: DRUG USE FOR UNKNOWN INDICATION
  2. ALPRAZOLAM [Suspect]
     Indication: DRUG USE FOR UNKNOWN INDICATION
  3. VICCILLIN [Concomitant]
     Indication: NEONATAL ASPIRATION
     Dosage: 280MG PER DAY
     Dates: start: 20090616, end: 20090621
  4. TOBRACIN [Concomitant]
     Indication: NEONATAL ASPIRATION
     Dosage: 10MG PER DAY
     Route: 065
     Dates: start: 20090616, end: 20090621

REACTIONS (4)
  - CONVULSION [None]
  - DRUG EXPOSURE DURING PREGNANCY [None]
  - DRUG WITHDRAWAL SYNDROME NEONATAL [None]
  - IRRITABILITY [None]
